FAERS Safety Report 19395814 (Version 1)
Quarter: 2021Q2

REPORT INFORMATION
  Report Type: Spontaneous
  Country: US (occurrence: US)
  Receive Date: 20210609
  Receipt Date: 20210609
  Transmission Date: 20210717
  Serious: No
  Sender: FDA-Public Use
  Company Number: US-SA-2021SA180303

PATIENT
  Age: 56 Year
  Sex: Female

DRUGS (2)
  1. ADMELOG [Suspect]
     Active Substance: INSULIN LISPRO
     Dosage: 10 IU, TID
     Route: 065
     Dates: start: 20210526
  2. ADMELOG [Suspect]
     Active Substance: INSULIN LISPRO
     Indication: TYPE 2 DIABETES MELLITUS
     Dosage: 15 IU, TID
     Route: 065

REACTIONS (4)
  - Visual impairment [Unknown]
  - Blood glucose increased [Unknown]
  - Stress [Unknown]
  - Device operational issue [Unknown]
